FAERS Safety Report 7577796-3 (Version None)
Quarter: 2011Q2

REPORT INFORMATION
  Report Type: 
  Country: None (occurrence: None)
  Receive Date: 20110628
  Receipt Date: 20110614
  Transmission Date: 20111010
  Serious: Yes (Life-Threatening, Hospitalization)
  Sender: FDA-Public Use
  Company Number: PHHY2011US52940

PATIENT
  Age: 67 Year
  Sex: Female

DRUGS (1)
  1. VALTURNA [Suspect]
     Indication: HYPERTENSION
     Dosage: 150 MG ALIS AND 160 MG VALS, 1 DF, QD
     Route: 048
     Dates: start: 20100126, end: 20101101

REACTIONS (2)
  - ANGIOEDEMA [None]
  - INFECTION [None]
